FAERS Safety Report 18278718 (Version 1)
Quarter: 2020Q3

REPORT INFORMATION
  Report Type: Spontaneous
  Country: GB (occurrence: GB)
  Receive Date: 20200917
  Receipt Date: 20200917
  Transmission Date: 20201103
  Serious: Yes (Other)
  Sender: FDA-Public Use
  Company Number: GB-MYLANLABS-2020M1078483

PATIENT
  Age: 72 Year
  Sex: Male
  Weight: 108 kg

DRUGS (10)
  1. LANSOPRAZOLE. [Suspect]
     Active Substance: LANSOPRAZOLE
     Indication: PRODUCT USED FOR UNKNOWN INDICATION
     Dosage: 30 MILLIGRAM
     Dates: start: 20200115
  2. OTOMIZE [Concomitant]
     Active Substance: DEXAMETHASONE\NEOMYCIN SULFATE
     Dosage: APPLY ONE SPRAY THREE TIMES A DAY
     Dates: start: 20200609, end: 20200707
  3. CETRABEN                           /01690401/ [Concomitant]
     Dosage: USE AS DIRECTED
     Dates: start: 20191113
  4. SALBUTAMOL [Concomitant]
     Active Substance: ALBUTEROL
     Dosage: 2 DOSAGE FORM, PRN
     Dates: start: 20130107
  5. QVAR [Concomitant]
     Active Substance: BECLOMETHASONE DIPROPIONATE
     Dosage: ONE PUFF TWICE A DAY
     Dates: start: 20161208
  6. CALCIPOTRIOL [Concomitant]
     Active Substance: CALCIPOTRIENE
     Dosage: SPREAD THINLY ON THE AFFECTED SKIN ONLY.FOR EXT
     Dates: start: 20191113
  7. UREA. [Concomitant]
     Active Substance: UREA
     Dosage: USE AS DIRECTED FOUR TIMES A DAY FOR 2 MONTHS
     Dates: start: 20191113
  8. NAPROXEN. [Concomitant]
     Active Substance: NAPROXEN
     Dosage: TAKE ONE 3 TIMES/DAY
     Dates: start: 20200806
  9. ENSTILAR [Concomitant]
     Active Substance: BETAMETHASONE DIPROPIONATE\CALCIPOTRIENE HYDRATE
     Dosage: APPLY ONCE DAILY FOR 4 WEEKS THEN ALTERNATE DAY
     Dates: start: 20191113
  10. DOVOBET [Concomitant]
     Active Substance: BETAMETHASONE\CALCIPOTRIENE
     Dosage: APPLY ONCE DAILY
     Dates: start: 20130107

REACTIONS (2)
  - Cough [Recovered/Resolved]
  - Pharyngeal paraesthesia [Unknown]

NARRATIVE: CASE EVENT DATE: 20200115
